FAERS Safety Report 10380617 (Version 1)
Quarter: 2014Q1

REPORT INFORMATION
  Report Type: Spontaneous
  Country: US (occurrence: None)
  Receive Date: 20140306
  Receipt Date: 20140306
  Transmission Date: 20141002
  Serious: Yes (Other)
  Sender: FDA-Public Use
  Company Number: 163-21880-13094148

PATIENT
  Age: 57 Year
  Sex: Male
  Weight: 69.85 kg

DRUGS (14)
  1. REVLIMID (LENALIDOMIDE) (15 MILLIGRAM, CAPSULES) [Suspect]
     Indication: PLASMA CELL MYELOMA
     Route: 048
     Dates: start: 20121211
  2. DEXAMETHASONE (DEXAMETHASONE) [Concomitant]
  3. ONDANSETRON  HCL (ONDANSETRON HYDROCHLORIDE) [Concomitant]
  4. LORAZEPAM (LORAZEPAM) [Concomitant]
  5. ACICLOVIR (ACICLOVIR) [Concomitant]
  6. MILK OF MAGNESIA (MAGNESIUM HYDROXIDE) [Concomitant]
  7. OXYCODONE HCL (OXYCODONE HYDROCHLORIDE) [Concomitant]
  8. VITAMIN K (PHYTOMENADIONE) [Concomitant]
  9. BACTRIM (BACTRIM) [Concomitant]
  10. CALCIUM CITRATE (CALCIIUM CITRATE) [Concomitant]
  11. ASPIRIN (ACETYLSALICYLIC ACID) [Concomitant]
  12. COLACE (DOCUSATE SODIUM) [Concomitant]
  13. OXYCONTIN (OXYCODONE HYDROCHLORIDE) [Concomitant]
  14. AMBIEN (ZOLPIDEM TARTRATE) [Concomitant]

REACTIONS (5)
  - Pallor [None]
  - Musculoskeletal stiffness [None]
  - Fatigue [None]
  - Myalgia [None]
  - Malaise [None]
